FAERS Safety Report 15383935 (Version 2)
Quarter: 2018Q4

REPORT INFORMATION
  Report Type: Spontaneous
  Country: JP (occurrence: JP)
  Receive Date: 20180914
  Receipt Date: 20181006
  Transmission Date: 20190204
  Serious: Yes (Death)
  Sender: FDA-Public Use
  Company Number: JP-AMGEN-JPNSP2018083108

PATIENT
  Age: 51 Year
  Sex: Male

DRUGS (2)
  1. PANITUMUMAB [Suspect]
     Active Substance: PANITUMUMAB
     Indication: COLON CANCER
     Dosage: 410 MG, Q2WEEKS
     Route: 041
     Dates: start: 20180404
  2. ADAPALENE. [Concomitant]
     Active Substance: ADAPALENE
     Dosage: UNK
     Route: 062

REACTIONS (2)
  - Dermatitis acneiform [Recovering/Resolving]
  - Bone marrow infiltration [Fatal]

NARRATIVE: CASE EVENT DATE: 20180425
